FAERS Safety Report 21376712 (Version 1)
Quarter: 2022Q3

REPORT INFORMATION
  Report Type: Spontaneous
  Country: DE (occurrence: DE)
  Receive Date: 20220926
  Receipt Date: 20220926
  Transmission Date: 20221027
  Serious: Yes (Hospitalization)
  Sender: FDA-Public Use
  Company Number: None

PATIENT
  Age: 80 Year
  Sex: Male
  Weight: 123 kg

DRUGS (12)
  1. AMLODIPINE BESYLATE [Suspect]
     Active Substance: AMLODIPINE BESYLATE
     Dosage: 5 MG, 0.5-0-0-0, TABLET
     Route: 048
  2. IRBESARTAN [Suspect]
     Active Substance: IRBESARTAN
     Dosage: DISCONTINUED SINCE 18MAY2021
     Dates: end: 20210518
  3. MOXONIDINE [Suspect]
     Active Substance: MOXONIDINE
     Dosage: 0.4 MG, 0-0-1-0, TABLET
     Route: 048
  4. APIXABAN [Concomitant]
     Active Substance: APIXABAN
     Dosage: 5 MG, 1-0-1-0, TABLETS
     Route: 048
  5. BISOPROLOL [Concomitant]
     Active Substance: BISOPROLOL
     Dosage: 1.25 MG, 0-0-1-0, TABLET
     Route: 048
  6. ROSUVASTATIN [Concomitant]
     Active Substance: ROSUVASTATIN
     Dosage: 10 MG, 0-0-1-0, TABLET
     Route: 048
  7. EZETIMIBE [Concomitant]
     Active Substance: EZETIMIBE
     Dosage: 10 MG, 0-0-1-0, TABLET
     Route: 048
  8. GLYCOPYRRONIUM BROMIDE/INDACATEROL [Concomitant]
     Dosage: 62.55|110 ?G, 1-0-0-0, CAPSULES FOR INHALATION
     Route: 055
  9. DICLOFENAC [Concomitant]
     Active Substance: DICLOFENAC
     Dosage: 75 MG, AS NEDDED, PROLONGED-RELEASE TABLETS
     Route: 048
  10. FENOTEROL HYDROBROMIDE\IPRATROPIUM BROMIDE [Concomitant]
     Active Substance: FENOTEROL HYDROBROMIDE\IPRATROPIUM BROMIDE
     Dosage: 0.039|0.019 MG, AS NEEDED, METERED DOSE INHALER
     Route: 055
  11. PREDNISOLONE [Concomitant]
     Active Substance: PREDNISOLONE
     Dosage: 10 MG, 1-0-0-0, TABLET
     Route: 048
  12. PANTOPRAZOLE [Concomitant]
     Active Substance: PANTOPRAZOLE
     Dosage: 20 MG, 1-0-0-0, PROLONGED-RELEASE TABLETS
     Route: 048

REACTIONS (7)
  - Musculoskeletal pain [Unknown]
  - Dizziness [Unknown]
  - Headache [Unknown]
  - Palpitations [Unknown]
  - Paraesthesia [Unknown]
  - Dysphonia [Unknown]
  - Hypotension [Unknown]
